FAERS Safety Report 4432632-9 (Version None)
Quarter: 2004Q3

REPORT INFORMATION
  Report Type: 
  Country: None (occurrence: None)
  Receive Date: 20040820
  Receipt Date: 20040720
  Transmission Date: 20050211
  Serious: Yes (Hospitalization, Other)
  Sender: FDA-Public Use
  Company Number: US_0402100510

PATIENT
  Age: 63 Year
  Sex: Male

DRUGS (13)
  1. PERMAX [Suspect]
     Indication: PARKINSON'S DISEASE
     Dosage: 1.5 MG/3 DAY
     Dates: start: 19970101
  2. SINEMET [Concomitant]
  3. CARBIDOPA W/LEVODOPA [Concomitant]
  4. EFFEXOR [Concomitant]
  5. ASPIRIN [Concomitant]
  6. PLAVIX [Concomitant]
  7. DIGOXIN [Concomitant]
  8. COMTAN [Concomitant]
  9. LASIX [Concomitant]
  10. K-DUR 10 [Concomitant]
  11. GLUCOSAMINE SULFATE [Concomitant]
  12. PRINIVIL [Concomitant]
  13. DOXAZOSIN [Concomitant]

REACTIONS (33)
  - ABDOMINAL DISTENSION [None]
  - ARTHRALGIA [None]
  - CARDIAC FAILURE [None]
  - CARDIAC MURMUR [None]
  - CARDIAC VALVE DISEASE [None]
  - CARDIOMEGALY [None]
  - CELLULITIS [None]
  - CHEST PAIN [None]
  - CORONARY ARTERY DISEASE [None]
  - COUGH [None]
  - DEAFNESS [None]
  - DEPRESSION [None]
  - DERMATITIS [None]
  - DIPLOPIA [None]
  - FALL [None]
  - FATIGUE [None]
  - HOARSENESS [None]
  - INJURY [None]
  - INSOMNIA [None]
  - INTERVERTEBRAL DISC DISORDER [None]
  - IVTH NERVE PARESIS [None]
  - LUNG DISORDER [None]
  - MITRAL VALVE INCOMPETENCE [None]
  - NERVOUSNESS [None]
  - OEDEMA PERIPHERAL [None]
  - RELATIONSHIP BREAKDOWN [None]
  - ROAD TRAFFIC ACCIDENT [None]
  - ROTATOR CUFF SYNDROME [None]
  - SPINAL DISORDER [None]
  - THERMAL BURN [None]
  - VENOUS INSUFFICIENCY [None]
  - VENOUS STASIS [None]
  - WEIGHT INCREASED [None]
